FAERS Safety Report 8062048-8 (Version None)
Quarter: 2012Q1

REPORT INFORMATION
  Report Type: 
  Country: None (occurrence: None)
  Receive Date: 20120123
  Receipt Date: 20120110
  Transmission Date: 20120608
  Serious: Yes (Other)
  Sender: FDA-Public Use
  Company Number: GB-RANBAXY-2012RR-51915

PATIENT
  Sex: Male

DRUGS (3)
  1. DONEPEZIL HCL [Suspect]
     Dosage: 15 MG, UNK
     Route: 065
  2. DONEPEZIL HCL [Suspect]
     Dosage: UNK
     Route: 065
  3. DONEPEZIL HCL [Suspect]
     Indication: COGNITIVE DISORDER
     Dosage: 5 MG/DAY
     Route: 065

REACTIONS (2)
  - SOMATIC DELUSION [None]
  - ACCIDENTAL EXPOSURE [None]
